FAERS Safety Report 6815416-3 (Version None)
Quarter: 2010Q3

REPORT INFORMATION
  Report Type: 
  Country: None (occurrence: None)
  Receive Date: 20100702
  Receipt Date: 20100630
  Transmission Date: 20110219
  Serious: Yes (Hospitalization)
  Sender: FDA-Public Use
  Company Number: US-ELI_LILLY_AND_COMPANY-US201007000063

PATIENT
  Sex: Female

DRUGS (7)
  1. HUMALOG MIX 75/25 [Suspect]
     Indication: DIABETES MELLITUS
     Dosage: 15 U, EACH MORNING
  2. HUMALOG MIX 75/25 [Suspect]
     Dosage: 15 U, EACH EVENING
  3. HUMALOG MIX 50/50 [Suspect]
  4. LIPITOR [Concomitant]
  5. LIPITOR [Concomitant]
  6. LIPITOR [Concomitant]
  7. LIPITOR [Concomitant]

REACTIONS (4)
  - BLOOD POTASSIUM INCREASED [None]
  - CARDIAC FAILURE CONGESTIVE [None]
  - CARDIAC PACEMAKER INSERTION [None]
  - DRUG DISPENSING ERROR [None]
